FAERS Safety Report 25435817 (Version 1)
Quarter: 2025Q2

REPORT INFORMATION
  Report Type: Spontaneous
  Country: US (occurrence: US)
  Receive Date: 20250613
  Receipt Date: 20250613
  Transmission Date: 20250716
  Serious: Yes (Other)
  Sender: BLUEPRINT MEDICINES
  Company Number: US-Blueprint Medicines Corporation-2025-AER-01260

PATIENT
  Age: 65 Year
  Sex: Female

DRUGS (1)
  1. AYVAKIT [Suspect]
     Active Substance: AVAPRITINIB
     Indication: Systemic mastocytosis
     Route: 048
     Dates: start: 20230525

REACTIONS (7)
  - Haematochezia [Recovering/Resolving]
  - Compartment syndrome [Unknown]
  - Face oedema [Recovering/Resolving]
  - Diarrhoea [Recovering/Resolving]
  - Iron deficiency anaemia [Unknown]
  - Tryptase increased [Recovering/Resolving]
  - Dizziness [Recovering/Resolving]
